FAERS Safety Report 20684472 (Version 1)
Quarter: 2022Q2

REPORT INFORMATION
  Report Type: Spontaneous
  Country: US (occurrence: US)
  Receive Date: 20220407
  Receipt Date: 20220407
  Transmission Date: 20220721
  Serious: No
  Sender: FDA-Public Use
  Company Number: US-MYLANLABS-2022M1024481

PATIENT
  Age: 20 Year
  Sex: Female

DRUGS (1)
  1. XULANE [Suspect]
     Active Substance: ETHINYL ESTRADIOL\NORELGESTROMIN
     Indication: Product used for unknown indication
     Dosage: UNK UNK, QD (150/35 MICROGRAM)
     Route: 062
     Dates: start: 20220313

REACTIONS (1)
  - Application site urticaria [Recovered/Resolved]

NARRATIVE: CASE EVENT DATE: 20220327
